FAERS Safety Report 19143184 (Version 1)
Quarter: 2021Q2

REPORT INFORMATION
  Report Type: Spontaneous
  Country: ES (occurrence: ES)
  Receive Date: 20210416
  Receipt Date: 20210416
  Transmission Date: 20210717
  Serious: Yes (Hospitalization)
  Sender: FDA-Public Use
  Company Number: ES-SUN PHARMACEUTICAL INDUSTRIES LTD-2021RR-290785

PATIENT
  Age: 77 Year
  Sex: Female

DRUGS (8)
  1. METFORMINA AUROVITAS 850 MG COMPRIMIDOS RECUBIERTOS CON PELICULA [Concomitant]
     Active Substance: METFORMIN HYDROCHLORIDE
     Indication: PRODUCT USED FOR UNKNOWN INDICATION
     Dosage: 1 COMP / 8 HOURS ()
     Route: 065
     Dates: start: 20070206
  2. ATORVASTATINA ALTER 40 MG COMPRIMIDOS RECUBIERTOS CON PELICULA [Concomitant]
     Active Substance: ATORVASTATIN CALCIUM
     Indication: PRODUCT USED FOR UNKNOWN INDICATION
     Dosage: UNK
     Route: 065
     Dates: start: 20110111
  3. IRBESARTAN HIDROCLOROTIAZIDA SUN 300/12,5 MG COMPRIMIDOS RECUBIERTOS C [Suspect]
     Active Substance: HYDROCHLOROTHIAZIDE\IRBESARTAN
     Indication: PRODUCT USED FOR UNKNOWN INDICATION
     Dosage: 1 TABLET / DAY ()
     Route: 065
     Dates: start: 20190904, end: 20191014
  4. ADIRO 100 MG COMPRIMIDOS GASTRORRESISTENTES EFG, 30 COMPRIMIDOS [Concomitant]
     Active Substance: ASPIRIN
     Indication: PRODUCT USED FOR UNKNOWN INDICATION
     Dosage: 1 COMP/24H ()
     Route: 065
     Dates: start: 20190708
  5. BISOPROLOL AUROVITAS 2,5 MG COMPRIMIDOS RECUBIERTOS CON PELICULA [Concomitant]
     Active Substance: BISOPROLOL FUMARATE
     Indication: PRODUCT USED FOR UNKNOWN INDICATION
     Dosage: 1 TABLET / DAY ()
     Route: 065
     Dates: start: 20190708
  6. TARDYFERON 80 MG COMPRIMIDOS RECUBIERTOS, 30 COMPRIMIDOS [Concomitant]
     Active Substance: FERROUS SULFATE
     Indication: PRODUCT USED FOR UNKNOWN INDICATION
     Dosage: 1 COMP/24H ()
     Route: 065
     Dates: start: 20130906
  7. CLOPIDOGREL AUROVITAS 75 MG COMPRIMIDOS RECUBIERTOS CON PELICULA [Concomitant]
     Active Substance: CLOPIDOGREL BISULFATE
     Indication: PRODUCT USED FOR UNKNOWN INDICATION
     Dosage: 1 TABLET / DAY ()
     Route: 065
     Dates: start: 20190802
  8. SUTRIL NEO 10 MG COMPRIMIDOS DE LIBERACION PROLONGADA, 30 COMPRIMIDOS [Suspect]
     Active Substance: TORSEMIDE
     Indication: PRODUCT USED FOR UNKNOWN INDICATION
     Dosage: 1 COMP/24H ()
     Route: 065
     Dates: start: 20190904

REACTIONS (1)
  - Hypomagnesaemia [Recovered/Resolved]

NARRATIVE: CASE EVENT DATE: 20191013
